FAERS Safety Report 18648991 (Version 5)
Quarter: 2021Q2

REPORT INFORMATION
  Report Type: Spontaneous
  Country: ES (occurrence: ES)
  Receive Date: 20201222
  Receipt Date: 20210409
  Transmission Date: 20210717
  Serious: Yes (Other)
  Sender: FDA-Public Use
  Company Number: ES-MYLANLABS-2020M1103313

PATIENT
  Age: 36 Year
  Sex: Female
  Weight: 50 kg

DRUGS (6)
  1. ISOTRETINOIN. [Suspect]
     Active Substance: ISOTRETINOIN
     Dosage: 10 MILLIGRAM, QD (LAST COURSE (CUMULATIVE DOSE 4640MG) TILL JAN 2010 APROX)
     Dates: start: 200904
  2. ISOTRETINOIN. [Suspect]
     Active Substance: ISOTRETINOIN
     Dosage: (2 COMPLET COURSE ISOTRETINOIN IN ANOTHER CENTER WHEN 20?21 YEARS OLD APROX)
  3. ISOTRETINOIN. [Suspect]
     Active Substance: ISOTRETINOIN
     Indication: ACNE
     Dosage: 4765 MG (CUMULATIVE DOSE) RECEIVED 3 DOSES
     Route: 065
  4. ISOTRETINOIN. [Suspect]
     Active Substance: ISOTRETINOIN
     Dosage: COURSE IN ANOTHER CENTRE
     Route: 048
     Dates: start: 200901, end: 201004
  5. ISOTRETINOIN. [Suspect]
     Active Substance: ISOTRETINOIN
     Dosage: UNK, CYCLE
     Dates: start: 1995
  6. ISOTRETINOIN. [Suspect]
     Active Substance: ISOTRETINOIN
     Dosage: COURSE IN ANOTHER CENTRE

REACTIONS (4)
  - Diffuse idiopathic skeletal hyperostosis [Unknown]
  - Musculoskeletal stiffness [Recovering/Resolving]
  - Neck pain [Recovering/Resolving]
  - Enthesopathy [Recovering/Resolving]

NARRATIVE: CASE EVENT DATE: 2008
